FAERS Safety Report 23408795 (Version 1)
Quarter: 2024Q1

REPORT INFORMATION
  Report Type: Spontaneous
  Country: US (occurrence: None)
  Receive Date: 20240115
  Receipt Date: 20240115
  Transmission Date: 20240410
  Serious: No
  Sender: FDA-Public Use
  Company Number: None

PATIENT

DRUGS (3)
  1. HEPARIN SODIUM [Suspect]
     Active Substance: HEPARIN SODIUM
     Dosage: OTHER STRENGTH : 1000 UNIT/500ML;?
  2. HEPARIN SODIUM [Suspect]
     Active Substance: HEPARIN SODIUM
     Dosage: OTHER STRENGTH : 25,000, UNIT/250ML;?
  3. HEPARIN SODIUM [Suspect]
     Active Substance: HEPARIN SODIUM
     Dosage: OTHER STRENGTH : 1,000 UNITS/500 ML;?

REACTIONS (3)
  - Product packaging confusion [None]
  - Product barcode issue [None]
  - Product design issue [None]
